FAERS Safety Report 5483583-2 (Version None)
Quarter: 2007Q4

REPORT INFORMATION
  Report Type: 
  Country: None (occurrence: None)
  Receive Date: 20071012
  Receipt Date: 20071008
  Transmission Date: 20080405
  Serious: Yes (Other)
  Sender: FDA-Public Use
  Company Number: DE-ASTRAZENECA-2007PK01327

PATIENT
  Age: 14221 Day
  Sex: Female
  Weight: 68 kg

DRUGS (2)
  1. ZOLADEX [Suspect]
     Indication: BREAST CANCER FEMALE
     Route: 058
     Dates: start: 20070614, end: 20070719
  2. AROMASIN [Concomitant]
     Indication: BREAST CANCER FEMALE
     Route: 048
     Dates: start: 20070613

REACTIONS (1)
  - CARCINOEMBRYONIC ANTIGEN INCREASED [None]
